FAERS Safety Report 25744795 (Version 1)
Quarter: 2025Q3

REPORT INFORMATION
  Report Type: Spontaneous
  Country: US (occurrence: US)
  Receive Date: 20250901
  Receipt Date: 20250901
  Transmission Date: 20251021
  Serious: Yes (Hospitalization, Other)
  Sender: EXELA PHARMA SCIENCES
  Company Number: US-EXELAPHARMA-2025EXLA00166

PATIENT
  Age: 39 Year
  Sex: Male

DRUGS (4)
  1. FENTANYL CITRATE [Suspect]
     Active Substance: FENTANYL CITRATE
     Indication: Substance use
     Route: 065
  2. XYLAZINE [Suspect]
     Active Substance: XYLAZINE
     Indication: Substance use
  3. COCAINE [Concomitant]
     Active Substance: COCAINE
  4. BENZODIAZEPINE [Suspect]
     Active Substance: BENZODIAZEPINE
     Indication: Product used for unknown indication

REACTIONS (24)
  - Heart rate increased [Recovered/Resolved]
  - Skin laceration [Unknown]
  - Head injury [Unknown]
  - Haemorrhage [Unknown]
  - Mucosal dryness [Unknown]
  - Ecchymosis [Unknown]
  - Skin abrasion [Unknown]
  - Compartment syndrome [Recovered/Resolved with Sequelae]
  - Leukocytosis [Unknown]
  - Blood creatinine increased [Recovering/Resolving]
  - Hyperkalaemia [Unknown]
  - Anion gap increased [Unknown]
  - Blood creatine phosphokinase increased [Recovering/Resolving]
  - Sinusitis [Unknown]
  - Toxicity to various agents [Unknown]
  - Blood potassium decreased [Recovering/Resolving]
  - Aspartate aminotransferase increased [Unknown]
  - Alanine aminotransferase increased [Unknown]
  - Lung opacity [Unknown]
  - Hypoxia [Recovered/Resolved]
  - Miosis [Unknown]
  - Blood pressure decreased [Recovered/Resolved]
  - Somnolence [Recovered/Resolved]
  - Overdose [Unknown]
